FAERS Safety Report 9555297 (Version 1)
Quarter: 2013Q3

REPORT INFORMATION
  Report Type: Spontaneous
  Country: US (occurrence: None)
  Receive Date: 20130816
  Receipt Date: 20130816
  Transmission Date: 20140515
  Serious: No
  Sender: FDA-Public Use
  Company Number: US-011561

PATIENT
  Age: 86 Year
  Sex: Male
  Weight: 72.58 kg

DRUGS (6)
  1. PICO-SALAX (NOT SPECIFIED) [Suspect]
     Indication: BOWEL PREPARATION
     Dosage: ONE PACKET MIXED IN 5OZ WATER AT 1500 AND ONE PACKET IN 5OZ WATER AT 2000 ORAL)?
     Route: 048
     Dates: start: 20130424, end: 20130424
  2. AMLODIPINE [Concomitant]
  3. B 12 [Concomitant]
  4. RED YEAST RICE [Concomitant]
  5. ALPRAZOLAM [Concomitant]
  6. IRON [Concomitant]

REACTIONS (1)
  - Drug ineffective [None]
